FAERS Safety Report 13941241 (Version 1)
Quarter: 2017Q3

REPORT INFORMATION
  Report Type: Spontaneous
  Country: US (occurrence: US)
  Receive Date: 20170906
  Receipt Date: 20170906
  Transmission Date: 20171127
  Serious: No
  Sender: FDA-Public Use
  Company Number: US-SUNOVION-2017SUN003752

PATIENT
  Sex: Female

DRUGS (1)
  1. BROVANA [Suspect]
     Active Substance: ARFORMOTEROL TARTRATE

REACTIONS (3)
  - Accidental exposure to product [Unknown]
  - Exposure via eye contact [Unknown]
  - Eye irritation [Unknown]

NARRATIVE: CASE EVENT DATE: 20170821
